FAERS Safety Report 25650907 (Version 1)
Quarter: 2025Q3

REPORT INFORMATION
  Report Type: Spontaneous
  Country: CH (occurrence: CH)
  Receive Date: 20250806
  Receipt Date: 20250806
  Transmission Date: 20251020
  Serious: Yes (Death)
  Sender: AMGEN
  Company Number: CH-AMGEN-CHESP2025153438

PATIENT
  Age: 80 Year
  Sex: Female

DRUGS (1)
  1. KYPROLIS [Suspect]
     Active Substance: CARFILZOMIB
     Indication: Plasma cell myeloma
     Route: 065

REACTIONS (5)
  - Death [Fatal]
  - Nightmare [Unknown]
  - Affective disorder [Unknown]
  - Dizziness [Unknown]
  - Headache [Unknown]
